FAERS Safety Report 18567647 (Version 2)
Quarter: 2020Q4

REPORT INFORMATION
  Report Type: Spontaneous
  Country: RS (occurrence: RS)
  Receive Date: 20201202
  Receipt Date: 20201215
  Transmission Date: 20210114
  Serious: Yes (Other)
  Sender: FDA-Public Use
  Company Number: RS-JNJFOC-20201150410

PATIENT
  Age: 51 Year
  Sex: Male

DRUGS (14)
  1. BARIOS [Concomitant]
     Dosage: 2.5 MG, QD
  2. RIVAROXABAN [Suspect]
     Active Substance: RIVAROXABAN
     Dosage: 20 MG, BID
     Route: 048
     Dates: start: 20200116
  3. ALOPURINOL [Concomitant]
     Active Substance: ALLOPURINOL
     Dosage: 100 MG, QD
  4. BROMAZEPAM [Concomitant]
     Active Substance: BROMAZEPAM
     Dosage: 1.5 MG, QD, EVENING
  5. MOVALIS [Concomitant]
     Active Substance: MELOXICAM
     Route: 030
  6. PRILINDA PLUS [Concomitant]
     Dosage: 2.5 MG, HALF DAILY
  7. RIVAROXABAN [Suspect]
     Active Substance: RIVAROXABAN
     Indication: EMBOLISM VENOUS
     Dosage: 15 MG, BID
     Route: 048
     Dates: start: 20191227
  8. EPILEP [Concomitant]
     Dosage: 1000 MG, BID
  9. METHYLPREDNISOLONE SODIUM SUCCINATE. [Concomitant]
     Active Substance: METHYLPREDNISOLONE SODIUM SUCCINATE
     Dosage: 40 UNK, UNK
     Route: 030
  10. HYPOLIP [LOVASTATIN] [Concomitant]
     Dosage: 10 MG
  11. NOLPAZA [Concomitant]
     Active Substance: PANTOPRAZOLE SODIUM
     Dosage: 20 MG, QD
  12. PARAVANO [Concomitant]
     Dosage: 10 MG
  13. CONCOR [Concomitant]
     Active Substance: BISOPROLOL FUMARATE
     Dosage: 2.5 MG, QD
  14. GASTROPRAZOL [OMEPRAZOLE] [Concomitant]
     Dosage: 10 MG, QD

REACTIONS (6)
  - Renal impairment [Unknown]
  - Musculoskeletal disorder [Recovering/Resolving]
  - Arthralgia [Recovering/Resolving]
  - Gout [Recovering/Resolving]
  - Blood urea increased [Recovering/Resolving]
  - Feeling hot [Recovering/Resolving]

NARRATIVE: CASE EVENT DATE: 2020
